FAERS Safety Report 7266341-8 (Version None)
Quarter: 2011Q1

REPORT INFORMATION
  Report Type: 
  Country: None (occurrence: None)
  Receive Date: 20110131
  Receipt Date: 20110120
  Transmission Date: 20110831
  Serious: Yes (Hospitalization, Other)
  Sender: FDA-Public Use
  Company Number: FR-BAXTER-2011BH001215

PATIENT
  Age: 71 Year
  Sex: Female
  Weight: 57 kg

DRUGS (11)
  1. SUFENTA PRESERVATIVE FREE [Suspect]
     Indication: ANAESTHESIA
     Route: 065
     Dates: start: 20110104, end: 20110104
  2. PREVISCAN [Concomitant]
     Indication: PRODUCT USED FOR UNKNOWN INDICATION
     Route: 065
     Dates: end: 20101231
  3. SUPRANE [Suspect]
     Route: 055
     Dates: start: 20110104, end: 20110104
  4. SUPRANE [Suspect]
     Indication: ARTERIAL REPAIR
     Route: 055
     Dates: start: 20110104, end: 20110104
  5. SUPRANE [Suspect]
     Route: 055
     Dates: start: 20110104, end: 20110104
  6. CEFUROXIME [Suspect]
     Indication: PRODUCT USED FOR UNKNOWN INDICATION
     Route: 065
     Dates: start: 20110104, end: 20110104
  7. DIPRIVAN [Suspect]
     Indication: ANAESTHESIA
     Route: 065
     Dates: start: 20110104, end: 20110104
  8. SUPRANE [Suspect]
     Indication: ANAESTHESIA
     Route: 055
     Dates: start: 20110104, end: 20110104
  9. NIMBEX [Suspect]
     Indication: ANAESTHESIA
     Route: 065
     Dates: start: 20110104, end: 20110104
  10. HYPNOVEL [Suspect]
     Indication: ANAESTHESIA
     Route: 065
     Dates: start: 20110104, end: 20110104
  11. HEPARIN SODIUM INJECTION [Suspect]
     Indication: PRODUCT USED FOR UNKNOWN INDICATION
     Route: 065
     Dates: start: 20110104, end: 20110104

REACTIONS (3)
  - CYTOLYTIC HEPATITIS [None]
  - RENAL FAILURE [None]
  - ENCEPHALOPATHY [None]
